FAERS Safety Report 21833802 (Version 1)
Quarter: 2023Q1

REPORT INFORMATION
  Report Type: Spontaneous
  Country: FR (occurrence: FR)
  Receive Date: 20230108
  Receipt Date: 20230108
  Transmission Date: 20230417
  Serious: Yes (Hospitalization, Other)
  Sender: FDA-Public Use
  Company Number: FR-AFSSAPS-GR20222659

PATIENT
  Age: 19 Year
  Sex: Female

DRUGS (3)
  1. DIAZEPAM [Suspect]
     Active Substance: DIAZEPAM
     Indication: Product used for unknown indication
     Dosage: 25 DOSAGE FORM (5 MG X 25 TABLETS SINGLE DOSE)
     Route: 048
     Dates: start: 20221129
  2. PAROXETINE [Suspect]
     Active Substance: PAROXETINE
     Indication: Product used for unknown indication
     Dosage: 5 DOSAGE FORM ( 20 MG X 5 TAB SINGLE DOSE)
     Route: 048
     Dates: start: 20221129
  3. ACETAMINOPHEN\OPIUM [Suspect]
     Active Substance: ACETAMINOPHEN\OPIUM
     Indication: Product used for unknown indication
     Dosage: 30 DOSAGE FORM (30-32 CP SINGLE DOSE)
     Route: 048
     Dates: start: 20221129

REACTIONS (4)
  - Hepatic cytolysis [Recovering/Resolving]
  - Vomiting [Recovered/Resolved]
  - Poisoning deliberate [Recovered/Resolved]
  - Somnolence [Recovered/Resolved]

NARRATIVE: CASE EVENT DATE: 20221129
